FAERS Safety Report 9806838 (Version 1)
Quarter: 2014Q1

REPORT INFORMATION
  Report Type: Spontaneous
  Country: US (occurrence: US)
  Receive Date: 20140109
  Receipt Date: 20140109
  Transmission Date: 20141002
  Serious: No
  Sender: FDA-Public Use
  Company Number: US-ABBVIE-13P-163-1141026-00

PATIENT
  Age: 62 Year
  Sex: Female

DRUGS (3)
  1. VICODIN [Suspect]
     Indication: PAIN
  2. NALTREXONE [Concomitant]
     Indication: PSORIATIC ARTHROPATHY
  3. AMBIEN [Concomitant]
     Indication: INSOMNIA

REACTIONS (3)
  - Hot flush [Not Recovered/Not Resolved]
  - Osteoporosis [Unknown]
  - Psoriatic arthropathy [Recovering/Resolving]
